FAERS Safety Report 9882485 (Version 2)
Quarter: 2014Q2

REPORT INFORMATION
  Report Type: Spontaneous
  Country: GB (occurrence: GB)
  Receive Date: 20140207
  Receipt Date: 20140507
  Transmission Date: 20141212
  Serious: Yes (Other)
  Sender: FDA-Public Use
  Company Number: GB-WATSON-2014-01653

PATIENT
  Age: 75 Year
  Sex: Male
  Weight: 72 kg

DRUGS (4)
  1. RAMIPRIL (UNKNOWN) [Suspect]
     Indication: PRODUCT USED FOR UNKNOWN INDICATION
     Dosage: 5 MG, SINGLE
     Route: 065
     Dates: start: 20131227
  2. RAMIPRIL (UNKNOWN) [Suspect]
     Dosage: 2.5 MG, DAILY
     Route: 065
     Dates: end: 20131226
  3. ASPIRIN [Concomitant]
     Indication: PRODUCT USED FOR UNKNOWN INDICATION
     Dosage: UNK
     Route: 065
     Dates: start: 20131206
  4. SIMVASTATIN [Concomitant]
     Indication: PRODUCT USED FOR UNKNOWN INDICATION
     Dosage: UNK
     Route: 065
     Dates: start: 20131206

REACTIONS (3)
  - Gingival swelling [Recovering/Resolving]
  - Loose tooth [Not Recovered/Not Resolved]
  - Oral discomfort [Not Recovered/Not Resolved]
